FAERS Safety Report 22536438 (Version 3)
Quarter: 2023Q4

REPORT INFORMATION
  Report Type: Report from Study
  Country: FR (occurrence: FR)
  Receive Date: 20230608
  Receipt Date: 20231011
  Transmission Date: 20240110
  Serious: Yes (Hospitalization)
  Sender: FDA-Public Use
  Company Number: FR-SA-SAC20230606000373

PATIENT
  Age: 60 Year
  Sex: Female
  Weight: 117.5 kg

DRUGS (8)
  1. ISATUXIMAB [Suspect]
     Active Substance: ISATUXIMAB
     Indication: Minimal residual disease
     Dosage: 10 MG/KG
     Route: 042
     Dates: start: 20220817, end: 20220817
  2. ISATUXIMAB [Suspect]
     Active Substance: ISATUXIMAB
     Dosage: 10 MG/KG
     Route: 042
     Dates: start: 20230215, end: 20230215
  3. CARFILZOMIB [Suspect]
     Active Substance: CARFILZOMIB
     Indication: Minimal residual disease
     Dosage: 20 MG/M2
     Route: 042
     Dates: start: 20220817, end: 20220817
  4. CARFILZOMIB [Suspect]
     Active Substance: CARFILZOMIB
     Dosage: 20 MG/M2
     Dates: start: 20230215, end: 20230215
  5. LENALIDOMIDE [Suspect]
     Active Substance: LENALIDOMIDE
     Indication: Minimal residual disease
     Dosage: 25 MG
     Route: 048
     Dates: start: 20220817, end: 20220817
  6. LENALIDOMIDE [Suspect]
     Active Substance: LENALIDOMIDE
     Dosage: 25 MG
     Route: 048
     Dates: start: 20230221, end: 20230221
  7. DEXAMETHASONE [Suspect]
     Active Substance: DEXAMETHASONE
     Indication: Minimal residual disease
     Dosage: 40 MG
     Route: 048
     Dates: start: 20220817, end: 20220817
  8. DEXAMETHASONE [Suspect]
     Active Substance: DEXAMETHASONE
     Dosage: 40 MG
     Route: 048
     Dates: start: 20230222, end: 20230222

REACTIONS (2)
  - Klebsiella sepsis [Recovered/Resolved]
  - Febrile bone marrow aplasia [Recovered/Resolved]

NARRATIVE: CASE EVENT DATE: 20230523
